FAERS Safety Report 13893956 (Version 2)
Quarter: 2017Q3

REPORT INFORMATION
  Report Type: Spontaneous
  Country: US (occurrence: US)
  Receive Date: 20170822
  Receipt Date: 20170830
  Transmission Date: 20171127
  Serious: Yes (Hospitalization)
  Sender: FDA-Public Use
  Company Number: US-ACTELION-A-US2017-158237

PATIENT
  Age: 4 Year
  Sex: Male

DRUGS (2)
  1. TRACLEER [Suspect]
     Active Substance: BOSENTAN
     Dosage: 62.5 MG, UNK
     Route: 048
     Dates: start: 20170619
  2. TRACLEER [Suspect]
     Active Substance: BOSENTAN
     Indication: PULMONARY ARTERIAL HYPERTENSION
     Dosage: 31.25 MG, QD
     Route: 048
     Dates: start: 20170530

REACTIONS (1)
  - Systemic-pulmonary artery shunt [Unknown]
